FAERS Safety Report 6604614-X (Version None)
Quarter: 2010Q1

REPORT INFORMATION
  Report Type: 
  Country: None (occurrence: None)
  Receive Date: 20100226
  Receipt Date: 20091229
  Transmission Date: 20100710
  Serious: No
  Sender: FDA-Public Use
  Company Number: A0836865A

PATIENT
  Sex: Female

DRUGS (3)
  1. LAMICTAL CD [Suspect]
     Indication: BIPOLAR DISORDER
     Route: 048
     Dates: start: 20060101
  2. VERAPAMIL [Concomitant]
  3. DYAZIDE [Concomitant]

REACTIONS (2)
  - RASH [None]
  - SCAR [None]
